FAERS Safety Report 22869232 (Version 2)
Quarter: 2024Q1

REPORT INFORMATION
  Report Type: Spontaneous
  Country: US (occurrence: US)
  Receive Date: 20230826
  Receipt Date: 20240124
  Transmission Date: 20240410
  Serious: Yes (Other)
  Sender: FDA-Public Use
  Company Number: US-ENDO PHARMACEUTICALS INC-2023-002110

PATIENT
  Sex: Male

DRUGS (1)
  1. RANITIDINE HYDROCHLORIDE [Suspect]
     Active Substance: RANITIDINE HYDROCHLORIDE
     Indication: Product used for unknown indication
     Dosage: UNK UNKNOWN, BID
     Route: 065

REACTIONS (5)
  - Colon neoplasm [Unknown]
  - Renal neoplasm [Unknown]
  - Bladder neoplasm [Unknown]
  - Amputation [Unknown]
  - Weight decreased [Unknown]
